FAERS Safety Report 8127493-0 (Version None)
Quarter: 2012Q1

REPORT INFORMATION
  Report Type: 
  Country: None (occurrence: None)
  Receive Date: 20120210
  Receipt Date: 20120126
  Transmission Date: 20120608
  Serious: Yes (Other)
  Sender: FDA-Public Use
  Company Number: US-UCBSA-022081

PATIENT
  Age: 30 Year
  Sex: Female
  Weight: 59.87 kg

DRUGS (19)
  1. CIPROFLOXACIN [Concomitant]
     Indication: CROHN'S DISEASE
     Route: 048
     Dates: start: 20100901, end: 20101001
  2. FLORASTOR [Concomitant]
     Dates: start: 20101005
  3. REMICADE [Concomitant]
  4. CIMZIA [Suspect]
     Indication: CROHN'S DISEASE
     Route: 058
     Dates: start: 20101115, end: 20110404
  5. FLAGYL [Concomitant]
     Dates: start: 20080902, end: 20081001
  6. PREDNISONE TAB [Concomitant]
     Route: 048
     Dates: start: 20101109, end: 20101114
  7. ACETAMINOPHEN [Concomitant]
     Indication: CROHN'S DISEASE
  8. REMICADE [Concomitant]
     Dates: start: 20100107, end: 20100107
  9. PREDNISONE TAB [Concomitant]
     Indication: CROHN'S DISEASE
     Route: 048
     Dates: start: 20111005
  10. PREDNISONE TAB [Concomitant]
     Route: 048
     Dates: start: 20060519, end: 20081201
  11. ALINIA [Concomitant]
     Route: 048
     Dates: start: 20101005, end: 20101015
  12. PREVACID [Concomitant]
     Dates: start: 20101005
  13. REMICADE [Concomitant]
     Dates: start: 20060101, end: 20091014
  14. MESALAMINE [Concomitant]
     Dates: start: 20060519, end: 20081001
  15. VANCOMYCIN [Concomitant]
     Route: 048
     Dates: start: 20101005, end: 20101015
  16. MULTI-VITAMINS [Concomitant]
     Indication: VITAMIN SUPPLEMENTATION
     Route: 048
     Dates: start: 20100901
  17. CIPROFLOXACIN [Concomitant]
     Dates: start: 20080902, end: 20081001
  18. FLAGYL [Concomitant]
     Indication: CROHN'S DISEASE
     Route: 048
     Dates: start: 20100901, end: 20101001
  19. MESALAMINE [Concomitant]
     Indication: CROHN'S DISEASE
     Dates: start: 20100519, end: 20100901

REACTIONS (2)
  - MATERNAL EXPOSURE DURING PREGNANCY [None]
  - CAESAREAN SECTION [None]
